FAERS Safety Report 20018195 (Version 2)
Quarter: 2021Q4

REPORT INFORMATION
  Report Type: Spontaneous
  Country: US (occurrence: US)
  Receive Date: 20211101
  Receipt Date: 20211129
  Transmission Date: 20220303
  Serious: No
  Sender: FDA-Public Use
  Company Number: US-ELI_LILLY_AND_COMPANY-US202110003735

PATIENT
  Age: 66 Year
  Sex: Female

DRUGS (3)
  1. TALTZ [Suspect]
     Active Substance: IXEKIZUMAB
     Indication: Psoriasis
     Dosage: 80 MG, MONTHLY (1/M)
     Route: 058
     Dates: start: 20191226, end: 20211004
  2. TALTZ [Suspect]
     Active Substance: IXEKIZUMAB
     Indication: Psoriatic arthropathy
  3. FLUOCINONIDE [Concomitant]
     Active Substance: FLUOCINONIDE
     Indication: Product used for unknown indication
     Dosage: UNK, UNKNOWN, 0.05%
     Route: 065

REACTIONS (5)
  - COVID-19 [Unknown]
  - Pruritus [Unknown]
  - Rash [Recovered/Resolved]
  - Alopecia [Unknown]
  - Hypersensitivity [Unknown]

NARRATIVE: CASE EVENT DATE: 20210801
